FAERS Safety Report 5050352-7 (Version None)
Quarter: 2006Q3

REPORT INFORMATION
  Report Type: 
  Country: None (occurrence: None)
  Receive Date: 20060707
  Receipt Date: 20060630
  Transmission Date: 20061208
  Serious: Yes (Hospitalization)
  Sender: FDA-Public Use
  Company Number: 200610830BYL

PATIENT
  Age: 51 Year
  Sex: Female
  Weight: 54.4 kg

DRUGS (7)
  1. CIPROXAN (CIPROFLOXACIN HYDROCHLORIDE) [Suspect]
     Indication: CYSTITIS
     Dosage: 200 MG, TID, ORAL
     Route: 048
     Dates: start: 20060612, end: 20060618
  2. GASMOTIN [Concomitant]
  3. LYSOZYME HYDROCHLORIDE [Concomitant]
  4. EUGLUCON [Concomitant]
  5. ACECOL [Concomitant]
  6. BLOPRESS [Concomitant]
  7. AMLODIN [Concomitant]

REACTIONS (1)
  - RHABDOMYOLYSIS [None]
